FAERS Safety Report 15789470 (Version 1)
Quarter: 2019Q1

REPORT INFORMATION
  Report Type: Spontaneous
  Country: US (occurrence: US)
  Receive Date: 20190103
  Receipt Date: 20190103
  Transmission Date: 20190417
  Serious: Yes (Life-Threatening, Hospitalization)
  Sender: FDA-Public Use
  Company Number: None

PATIENT
  Age: 13 Year
  Sex: Female
  Weight: 60.5 kg

DRUGS (5)
  1. PEGASPARGASE [Suspect]
     Active Substance: PEGASPARGASE
     Indication: CHRONIC LYMPHOCYTIC LEUKAEMIA
     Dosage: ?          OTHER FREQUENCY:PER CHEMO PROTOCOL;?
     Route: 040
  2. LMX (LIDOCAINE 4%) CREAM [Concomitant]
     Dates: start: 20190102, end: 20190102
  3. VINCRISTINE 2 MG [Concomitant]
     Dates: start: 20190102, end: 20190102
  4. ACETAMINOPHEN 650 MG TAB [Concomitant]
     Dates: start: 20190102, end: 20190102
  5. DIPHENHYDRAMINE 50 MG [Concomitant]
     Dates: start: 20190102, end: 20190102

REACTIONS (6)
  - Respiratory distress [None]
  - Bradycardia [None]
  - Anaphylactic shock [None]
  - Cardiac arrest [None]
  - Hypotension [None]
  - Tachycardia [None]

NARRATIVE: CASE EVENT DATE: 20190102
